FAERS Safety Report 26162124 (Version 2)
Quarter: 2025Q4

REPORT INFORMATION
  Report Type: Spontaneous
  Country: JP (occurrence: JP)
  Receive Date: 20251216
  Receipt Date: 20251223
  Transmission Date: 20260118
  Serious: No
  Sender: GILEAD
  Company Number: JP-GILEAD-2025-0740817

PATIENT
  Age: 8 Decade
  Sex: Female

DRUGS (1)
  1. TRODELVY [Suspect]
     Active Substance: SACITUZUMAB GOVITECAN-HZIY
     Indication: Product used for unknown indication
     Dosage: 470 MG
     Route: 065
     Dates: start: 20251210

REACTIONS (1)
  - Blood pressure increased [Recovered/Resolved]

NARRATIVE: CASE EVENT DATE: 20251210
